FAERS Safety Report 16077947 (Version 3)
Quarter: 2019Q2

REPORT INFORMATION
  Report Type: Spontaneous
  Country: AU (occurrence: AU)
  Receive Date: 20190315
  Receipt Date: 20190612
  Transmission Date: 20190711
  Serious: Yes (Other)
  Sender: FDA-Public Use
  Company Number: AU-PFIZER INC-2019110006

PATIENT
  Age: 70 Year
  Sex: Female

DRUGS (1)
  1. INFLIXIMAB HOSPIRA [Suspect]
     Active Substance: INFLIXIMAB
     Indication: COLITIS ULCERATIVE

REACTIONS (3)
  - Clostridium difficile infection [Unknown]
  - Drug ineffective [Unknown]
  - Cytomegalovirus infection [Unknown]
